FAERS Safety Report 5492246-9 (Version None)
Quarter: 2007Q4

REPORT INFORMATION
  Report Type: 
  Country: None (occurrence: None)
  Receive Date: 20071015
  Receipt Date: 20070706
  Transmission Date: 20080405
  Serious: No
  Sender: FDA-Public Use
  Company Number: 2007SP002476

PATIENT
  Age: 72 Year
  Sex: Male
  Weight: 65.7716 kg

DRUGS (7)
  1. LUNESTA [Suspect]
     Indication: INSOMNIA
     Dosage: 2 MG;PRN;ORAL, 3 MG;PRN;ORAL
     Route: 048
     Dates: start: 20060101
  2. LUNESTA [Suspect]
     Indication: INSOMNIA
     Dosage: 2 MG;PRN;ORAL, 3 MG;PRN;ORAL
     Route: 048
     Dates: start: 20070101
  3. ATENOLOL [Concomitant]
  4. AMLODIPINE [Concomitant]
  5. WARFARIN SODIUM [Concomitant]
  6. MINERAL SUPPLEMENTS [Concomitant]
  7. TYLENOL [Concomitant]

REACTIONS (4)
  - DIZZINESS [None]
  - DRUG INEFFECTIVE [None]
  - INSOMNIA [None]
  - NAUSEA [None]
